FAERS Safety Report 13984261 (Version 1)
Quarter: 2017Q3

REPORT INFORMATION
  Report Type: Spontaneous
  Country: US (occurrence: US)
  Receive Date: 20170918
  Receipt Date: 20170918
  Transmission Date: 20171128
  Serious: Yes (Hospitalization, Other)
  Sender: FDA-Public Use
  Company Number: US-TEVA-806429USA

PATIENT
  Age: 17 Year
  Sex: Female

DRUGS (4)
  1. IBUPROFEN. [Concomitant]
     Active Substance: IBUPROFEN
     Route: 048
  2. WARFARIN [Suspect]
     Active Substance: WARFARIN
     Indication: INTENTIONAL OVERDOSE
     Route: 048
  3. METOPROLOL. [Concomitant]
     Active Substance: METOPROLOL
     Route: 048
  4. PARACETAMOL [Concomitant]
     Active Substance: ACETAMINOPHEN
     Route: 048

REACTIONS (4)
  - Suicide attempt [Recovering/Resolving]
  - Ischaemic stroke [Recovering/Resolving]
  - Intentional overdose [Recovering/Resolving]
  - Thrombosis [Recovering/Resolving]
